FAERS Safety Report 4904729-8 (Version None)
Quarter: 2006Q1

REPORT INFORMATION
  Report Type: 
  Country: None (occurrence: None)
  Receive Date: 20060208
  Receipt Date: 20050926
  Transmission Date: 20060701
  Serious: No
  Sender: FDA-Public Use
  Company Number: US-GLAXOSMITHKLINE-A0575916A

PATIENT
  Age: 47 Year
  Sex: Female

DRUGS (4)
  1. PAXIL [Suspect]
     Dosage: 60MG SEE DOSAGE TEXT
     Route: 048
     Dates: start: 19980101
  2. LEVOXYL [Concomitant]
  3. CHROMIUM [Concomitant]
  4. L-CARNITINE [Concomitant]

REACTIONS (3)
  - INCORRECT DOSE ADMINISTERED [None]
  - INSOMNIA [None]
  - RESTLESSNESS [None]
